FAERS Safety Report 7360231-8 (Version None)
Quarter: 2011Q1

REPORT INFORMATION
  Report Type: 
  Country: None (occurrence: None)
  Receive Date: 20110318
  Receipt Date: 20110308
  Transmission Date: 20110831
  Serious: Yes (Other)
  Sender: FDA-Public Use
  Company Number: US-RB-022867-11

PATIENT
  Age: 69 Year
  Sex: Female

DRUGS (1)
  1. MUCINEX DM [Suspect]
     Dosage: DRUG DOSING ON 01-MAR-2011
     Route: 048

REACTIONS (4)
  - HEADACHE [None]
  - DIZZINESS [None]
  - HYPERTENSION [None]
  - PANIC ATTACK [None]
